FAERS Safety Report 5269295-9 (Version None)
Quarter: 2007Q1

REPORT INFORMATION
  Report Type: 
  Country: None (occurrence: None)
  Receive Date: 20070319
  Receipt Date: 20070308
  Transmission Date: 20070707
  Serious: Yes (Hospitalization)
  Sender: FDA-Public Use
  Company Number: FR-PFIZER INC-2006150269

PATIENT
  Age: 83 Year
  Sex: Female
  Weight: 55 kg

DRUGS (5)
  1. ALDACTONE [Suspect]
     Route: 048
  2. ENALAPRIL MALEATE [Interacting]
     Route: 048
  3. POTASSIUM CHLORIDE [Interacting]
     Dosage: TEXT:2 DOSE FORM-FREQ:DAILY
     Route: 048
  4. LASIX [Interacting]
     Route: 048
  5. LEVOTHYROXINE SODIUM [Concomitant]
     Dosage: DAILY DOSE:100MCG-FREQ:DAILY
     Route: 048

REACTIONS (10)
  - ASTHENIA [None]
  - ATRIAL FIBRILLATION [None]
  - DRUG INTERACTION [None]
  - FALL [None]
  - FOLATE DEFICIENCY [None]
  - GASTROENTERITIS [None]
  - HYPERKALAEMIA [None]
  - IRON DEFICIENCY [None]
  - MYALGIA [None]
  - RENAL FAILURE ACUTE [None]
